FAERS Safety Report 7003697-5 (Version None)
Quarter: 2010Q3

REPORT INFORMATION
  Report Type: 
  Country: None (occurrence: None)
  Receive Date: 20100920
  Receipt Date: 20090602
  Transmission Date: 20110219
  Serious: No
  Sender: FDA-Public Use
  Company Number: US-WYE-H09602209

PATIENT
  Sex: Female
  Weight: 68.1 kg

DRUGS (5)
  1. PROTONIX [Suspect]
     Indication: GASTROOESOPHAGEAL REFLUX DISEASE
     Route: 048
     Dates: start: 20090409
  2. SEROQUEL [Concomitant]
  3. LEXAPRO [Concomitant]
  4. ERGOCALCIFEROL [Concomitant]
  5. DOCUSATE SODIUM/MINERALS NOS/VITAMINS NOS [Concomitant]

REACTIONS (2)
  - DRUG EXPOSURE DURING PREGNANCY [None]
  - DRUG SCREEN FALSE POSITIVE [None]
